FAERS Safety Report 8391437-7 (Version None)
Quarter: 2012Q1

REPORT INFORMATION
  Report Type: 
  Country: None (occurrence: None)
  Receive Date: 20120323
  Receipt Date: 20110415
  Transmission Date: 20120608
  Serious: Yes (Hospitalization, Other)
  Sender: FDA-Public Use
  Company Number: 163-21880-11033321

PATIENT
  Sex: Male

DRUGS (2)
  1. REVLIMID [Suspect]
     Indication: MULTIPLE MYELOMA
     Dosage: 25 MG, DAILY X 21 DAYS, PO ; 25 MG, 1 IN 1 D, PO
     Route: 048
     Dates: start: 20110215, end: 20110301
  2. REVLIMID [Suspect]
     Indication: MULTIPLE MYELOMA
     Dosage: 25 MG, DAILY X 21 DAYS, PO ; 25 MG, 1 IN 1 D, PO
     Route: 048
     Dates: start: 20100927, end: 20101201

REACTIONS (3)
  - PALPITATIONS [None]
  - DYSPNOEA [None]
  - OEDEMA PERIPHERAL [None]
